FAERS Safety Report 25575821 (Version 1)
Quarter: 2025Q3

REPORT INFORMATION
  Report Type: Spontaneous
  Country: EU (occurrence: EU)
  Receive Date: 20250718
  Receipt Date: 20250718
  Transmission Date: 20251020
  Serious: Yes (Life-Threatening, Other)
  Sender: ABBVIE
  Company Number: EU-PFIZER INC-PV202500082168

PATIENT
  Age: 29 Year
  Sex: Male

DRUGS (3)
  1. AVIBACTAM\AZTREONAM [Suspect]
     Active Substance: AVIBACTAM\AZTREONAM
     Indication: Pneumonia
     Route: 065
     Dates: start: 20250625, end: 20250701
  2. AVIBACTAM\AZTREONAM [Suspect]
     Active Substance: AVIBACTAM\AZTREONAM
     Indication: Pneumonia
     Dosage: UNK UNK, 4X/DAY (2G/ 0.67 G LOADING DOSE)
     Route: 065
     Dates: start: 20250702
  3. AVIBACTAM\AZTREONAM [Suspect]
     Active Substance: AVIBACTAM\AZTREONAM
     Indication: Pneumonia
     Dosage: UNK UNK, 4X/DAY (1.5 G/ 0.5 G MAINTENANCE DOSE)
     Route: 065

REACTIONS (2)
  - Underdose [Unknown]
  - Drug ineffective [Unknown]

NARRATIVE: CASE EVENT DATE: 20250625
